FAERS Safety Report 5978640-8 (Version None)
Quarter: 2008Q4

REPORT INFORMATION
  Report Type: 
  Country: None (occurrence: None)
  Receive Date: 20081126
  Receipt Date: 20081111
  Transmission Date: 20090506
  Serious: Yes (Hospitalization)
  Sender: FDA-Public Use
  Company Number: PHO-2008-060

PATIENT
  Age: 67 Year
  Sex: Female
  Weight: 45.3597 kg

DRUGS (6)
  1. PHOTOFRIN [Suspect]
     Indication: CARDIAC DISORDER
     Dosage: 1 ADMINSTRATION , IV
     Route: 042
     Dates: start: 20081021
  2. PHOTOFRIN [Suspect]
     Indication: LUNG DISORDER
     Dosage: 1 ADMINSTRATION , IV
     Route: 042
     Dates: start: 20081021
  3. PREDNISONE TAB [Concomitant]
  4. FOLIC ACID [Concomitant]
  5. MULTI-VITAMINS [Concomitant]
  6. TYLENOL (CAPLET) [Concomitant]

REACTIONS (6)
  - FEELING ABNORMAL [None]
  - PAIN IN EXTREMITY [None]
  - PROCEDURAL COMPLICATION [None]
  - UNEVALUABLE EVENT [None]
  - VASOCONSTRICTION [None]
  - VEIN PAIN [None]
